FAERS Safety Report 6343886-6 (Version None)
Quarter: 2009Q3

REPORT INFORMATION
  Report Type: 
  Country: None (occurrence: None)
  Receive Date: 20090908
  Receipt Date: 20090902
  Transmission Date: 20100115
  Serious: Yes (Other)
  Sender: FDA-Public Use
  Company Number: FR-JNJFOC-20090900926

PATIENT
  Age: 32 Year
  Sex: Male

DRUGS (4)
  1. RISPERDAL [Suspect]
     Indication: SCHIZOPHRENIA
     Route: 048
     Dates: start: 20090814, end: 20090816
  2. CYMBALTA [Concomitant]
     Route: 065
  3. NOZINAN [Concomitant]
     Route: 065
  4. RIVOTRIL [Concomitant]
     Route: 065

REACTIONS (1)
  - HEPATITIS [None]
